FAERS Safety Report 16700363 (Version 1)
Quarter: 2019Q3

REPORT INFORMATION
  Report Type: Spontaneous
  Country: US (occurrence: US)
  Receive Date: 20190814
  Receipt Date: 20190814
  Transmission Date: 20191004
  Serious: No
  Sender: FDA-Public Use
  Company Number: US-LUPIN PHARMACEUTICALS INC.-2019-04519

PATIENT
  Age: 60 Year
  Sex: Female
  Weight: 74.83 kg

DRUGS (1)
  1. LEVOTHYROXINE SODIUM TABLETS USP, 75 MCG [Suspect]
     Active Substance: LEVOTHYROXINE SODIUM
     Indication: HORMONE REPLACEMENT THERAPY
     Dosage: 75 MICROGRAM, QD
     Route: 048
     Dates: start: 20190618

REACTIONS (3)
  - Paraesthesia [Not Recovered/Not Resolved]
  - Rash [Unknown]
  - Product substitution issue [Unknown]

NARRATIVE: CASE EVENT DATE: 20190702
